FAERS Safety Report 13376511 (Version 6)
Quarter: 2020Q4

REPORT INFORMATION
  Report Type: Spontaneous
  Country: US (occurrence: US)
  Receive Date: 20170328
  Receipt Date: 20201106
  Transmission Date: 20210113
  Serious: Yes (Other)
  Sender: FDA-Public Use
  Company Number: US-PFIZER INC-2017133023

PATIENT
  Age: 73 Year
  Sex: Female

DRUGS (2)
  1. PREMARIN [Suspect]
     Active Substance: ESTROGENS, CONJUGATED
     Indication: VULVOVAGINAL DISCOMFORT
  2. PREMARIN [Suspect]
     Active Substance: ESTROGENS, CONJUGATED
     Indication: VULVOVAGINAL DRYNESS
     Dosage: UNK, 2X/WEEK (A HALF OR LESS. DOESN^T FILL TUBE UP, TWICE A WEEK)
     Route: 067

REACTIONS (12)
  - Deafness neurosensory [Unknown]
  - Oral fungal infection [Unknown]
  - Cataract [Unknown]
  - Expired product administered [Unknown]
  - Gait disturbance [Unknown]
  - Drug ineffective [Unknown]
  - Breast disorder [Unknown]
  - Bladder prolapse [Unknown]
  - Intentional product misuse [Unknown]
  - Illness [Unknown]
  - Malaise [Unknown]
  - Vulvovaginal burning sensation [Unknown]

NARRATIVE: CASE EVENT DATE: 2018
